FAERS Safety Report 13601296 (Version 2)
Quarter: 2017Q2

REPORT INFORMATION
  Report Type: Spontaneous
  Country: JP (occurrence: JP)
  Receive Date: 20170601
  Receipt Date: 20170623
  Transmission Date: 20170830
  Serious: Yes (Death)
  Sender: FDA-Public Use
  Company Number: JP-ASTELLAS-2017JP009966

PATIENT
  Age: 91 Year
  Sex: Male
  Weight: 40 kg

DRUGS (2)
  1. FUNGUARD [Suspect]
     Active Substance: MICAFUNGIN SODIUM
     Indication: CANDIDA INFECTION
     Route: 041
  2. FUNGUARD [Suspect]
     Active Substance: MICAFUNGIN SODIUM
     Indication: BLOOD BETA-D-GLUCAN INCREASED

REACTIONS (1)
  - Death [Fatal]
